FAERS Safety Report 4847452-0 (Version None)
Quarter: 2005Q4

REPORT INFORMATION
  Report Type: 
  Country: None (occurrence: None)
  Receive Date: 20051202
  Receipt Date: 20051117
  Transmission Date: 20060501
  Serious: Yes (Other)
  Sender: FDA-Public Use
  Company Number: DSA_27453_2005

PATIENT
  Age: 10 Month
  Sex: 0

DRUGS (1)
  1. RENIVACE [Suspect]
     Indication: CARDIOMYOPATHY
     Dosage: 2 MG Q DAY PO
     Route: 048
     Dates: start: 20050517

REACTIONS (1)
  - DRUG DISPENSING ERROR [None]
